FAERS Safety Report 7054816-6 (Version None)
Quarter: 2010Q4

REPORT INFORMATION
  Report Type: 
  Country: None (occurrence: None)
  Receive Date: 20101021
  Receipt Date: 20101014
  Transmission Date: 20110411
  Serious: Yes (Other)
  Sender: FDA-Public Use
  Company Number: US-BIOGENIDEC-2010BI001677

PATIENT
  Age: 40 Year
  Sex: Female

DRUGS (9)
  1. TYSABRI [Suspect]
     Indication: MULTIPLE SCLEROSIS
     Route: 042
     Dates: start: 20080220, end: 20091123
  2. LISINOPRIL [Concomitant]
     Dates: end: 20091201
  3. BACLOFEN [Concomitant]
     Dates: end: 20091201
  4. DARVOCET [Concomitant]
     Dates: end: 20091201
  5. LEVOXYL [Concomitant]
  6. LEVOXYL [Concomitant]
  7. PRENATAL VITAMINS [Concomitant]
  8. ASPIRIN [Concomitant]
  9. ZYRTEC [Concomitant]

REACTIONS (9)
  - ALPHA 1 FOETOPROTEIN ABNORMAL [None]
  - BREECH PRESENTATION [None]
  - CAESAREAN SECTION [None]
  - DRUG EXPOSURE DURING PREGNANCY [None]
  - FAMILY STRESS [None]
  - GESTATIONAL HYPERTENSION [None]
  - MULTIPLE SCLEROSIS RELAPSE [None]
  - PLACENTA PRAEVIA [None]
  - PREGNANCY [None]
